FAERS Safety Report 7792169-6 (Version None)
Quarter: 2011Q4

REPORT INFORMATION
  Report Type: 
  Country: None (occurrence: None)
  Receive Date: 20111003
  Receipt Date: 20111003
  Transmission Date: 20120403
  Serious: Yes (Other)
  Sender: FDA-Public Use
  Company Number: None

PATIENT
  Age: 61 Year
  Sex: Female
  Weight: 81.646 kg

DRUGS (1)
  1. SPIRONOLACTONE [Suspect]
     Indication: BLOOD TESTOSTERONE INCREASED
     Dosage: 1 TABLET
     Route: 048
     Dates: start: 20110621, end: 20110929

REACTIONS (3)
  - BURNING SENSATION [None]
  - ALOPECIA [None]
  - HAIR TEXTURE ABNORMAL [None]
